FAERS Safety Report 14803859 (Version 1)
Quarter: 2018Q2

REPORT INFORMATION
  Report Type: Spontaneous
  Country: US (occurrence: US)
  Receive Date: 20180416
  Receipt Date: 20180416
  Transmission Date: 20180711
  Serious: Yes (Other)
  Sender: FDA-Public Use
  Company Number: None

PATIENT
  Age: 79 Year
  Sex: Female

DRUGS (1)
  1. CAPECITABINE 150MG [Suspect]
     Active Substance: CAPECITABINE
     Indication: BREAST CANCER
     Route: 048
     Dates: start: 20170913

REACTIONS (3)
  - Palmar-plantar erythrodysaesthesia syndrome [None]
  - Skin exfoliation [None]
  - Haemorrhage [None]

NARRATIVE: CASE EVENT DATE: 20180312
